FAERS Safety Report 19327839 (Version 1)
Quarter: 2021Q2

REPORT INFORMATION
  Report Type: Spontaneous
  Country: US (occurrence: US)
  Receive Date: 20210528
  Receipt Date: 20210528
  Transmission Date: 20210717
  Serious: No
  Sender: FDA-Public Use
  Company Number: US-MICRO LABS LIMITED-ML2021-00491

PATIENT
  Sex: Male

DRUGS (4)
  1. DORZOLAMIDE HYDROCHLORIDE OPHTHALMIC SOLUTION USP, 2% [Suspect]
     Active Substance: DORZOLAMIDE HYDROCHLORIDE
     Indication: GLAUCOMA
     Route: 047
     Dates: start: 20210104
  2. LATANOPROST. [Concomitant]
     Active Substance: LATANOPROST
     Dosage: NIGHT TIME BEFORE GOING TO BED
  3. LOSARTAN. [Concomitant]
     Active Substance: LOSARTAN
  4. Q SAP [Concomitant]
     Dosage: ABOUT 4 HOURS A PART

REACTIONS (2)
  - Eye pruritus [Unknown]
  - Drug hypersensitivity [Unknown]

NARRATIVE: CASE EVENT DATE: 20210206
